FAERS Safety Report 6781405-0 (Version None)
Quarter: 2010Q2

REPORT INFORMATION
  Report Type: 
  Country: None (occurrence: None)
  Receive Date: 20100621
  Receipt Date: 20100611
  Transmission Date: 20101027
  Serious: Yes (Life-Threatening, Hospitalization, Other)
  Sender: FDA-Public Use
  Company Number: FR-ROCHE-690741

PATIENT
  Sex: Female
  Weight: 54 kg

DRUGS (12)
  1. AVASTIN [Suspect]
     Indication: OVARIAN CANCER RECURRENT
     Dosage: THREE CYCLES
     Route: 042
     Dates: start: 20081003, end: 20081128
  2. CARBOPLATIN [Concomitant]
     Indication: OVARIAN CANCER RECURRENT
     Dosage: 04 CYCLES
     Dates: start: 20041101, end: 20050101
  3. CARBOPLATIN [Concomitant]
     Dosage: 06 CYCLES
     Dates: end: 20070101
  4. CARBOPLATIN [Concomitant]
     Dates: start: 20081001, end: 20090401
  5. OXALIPLATINE [Concomitant]
     Indication: OVARIAN CANCER RECURRENT
  6. OXALIPLATINE [Concomitant]
  7. LEVOTHYROXINE SODIUM [Concomitant]
     Indication: THYROIDECTOMY
     Route: 048
  8. TENORMIN [Concomitant]
     Route: 048
  9. AMLOR [Concomitant]
     Route: 048
     Dates: start: 20081212
  10. DEROXAT [Concomitant]
     Route: 048
  11. XANAX [Concomitant]
     Route: 048
  12. CAELYX [Concomitant]
     Dosage: 03+5 CYCLES
     Route: 042
     Dates: start: 20081001, end: 20090401

REACTIONS (11)
  - ANAEMIA [None]
  - HAEMATURIA [None]
  - HAEMODIALYSIS [None]
  - HYPERTENSION [None]
  - METASTASES TO LYMPH NODES [None]
  - METASTASES TO PERITONEUM [None]
  - PROTEINURIA [None]
  - RECURRENT CANCER [None]
  - RENAL FAILURE [None]
  - RENAL TUBULAR NECROSIS [None]
  - THROMBOTIC MICROANGIOPATHY [None]
